FAERS Safety Report 5328831-4 (Version None)
Quarter: 2007Q2

REPORT INFORMATION
  Report Type: 
  Country: None (occurrence: None)
  Receive Date: 20070518
  Receipt Date: 20070510
  Transmission Date: 20071010
  Serious: Yes (Life-Threatening, Hospitalization)
  Sender: FDA-Public Use
  Company Number: DK-ELI_LILLY_AND_COMPANY-DK200705002986

PATIENT
  Age: 40 Year
  Sex: Female
  Weight: 94 kg

DRUGS (2)
  1. PEMETREXED [Suspect]
     Indication: NON-SMALL CELL LUNG CANCER
  2. THERAPEUTIC RADIOPHARMACEUTICALS [Concomitant]

REACTIONS (6)
  - BLOOD CREATININE INCREASED [None]
  - CONTUSION [None]
  - HYPOKALAEMIA [None]
  - RENAL DISORDER [None]
  - SUBCUTANEOUS HAEMATOMA [None]
  - THROMBOCYTOPENIA [None]
